FAERS Safety Report 7491318-7 (Version None)
Quarter: 2011Q2

REPORT INFORMATION
  Report Type: 
  Country: None (occurrence: None)
  Receive Date: 20110519
  Receipt Date: 20110512
  Transmission Date: 20111010
  Serious: Yes (Hospitalization)
  Sender: FDA-Public Use
  Company Number: B0719992A

PATIENT
  Age: 8 Year
  Sex: Male
  Weight: 28 kg

DRUGS (1)
  1. CEFUROXIME AXETIL [Suspect]
     Indication: MIDDLE EAR DISORDER
     Dosage: 1U TWICE PER DAY
     Route: 065
     Dates: start: 20110322, end: 20110327

REACTIONS (2)
  - ENTEROCOLITIS HAEMORRHAGIC [None]
  - CLOSTRIDIUM TEST POSITIVE [None]
